FAERS Safety Report 11849806 (Version 1)
Quarter: 2015Q4

REPORT INFORMATION
  Report Type: Spontaneous
  Country: US (occurrence: US)
  Receive Date: 20151218
  Receipt Date: 20151218
  Transmission Date: 20160305
  Serious: No
  Sender: FDA-Public Use
  Company Number: US-TAKEDA-2015TUS018090

PATIENT
  Sex: Female
  Weight: 93.88 kg

DRUGS (6)
  1. COLCHICINE. [Suspect]
     Active Substance: COLCHICINE
     Indication: GOUT
     Dosage: UNK
     Route: 048
     Dates: start: 2013, end: 2013
  2. ULORIC [Suspect]
     Active Substance: FEBUXOSTAT
     Dosage: UNK UNK, QD
     Route: 048
     Dates: start: 2015, end: 2015
  3. METFORMIN [Concomitant]
     Active Substance: METFORMIN HYDROCHLORIDE
     Indication: TYPE 2 DIABETES MELLITUS
     Dosage: 500 MG, BID
     Route: 048
  4. ALEVE [Concomitant]
     Active Substance: NAPROXEN SODIUM
     Indication: GOUT
     Dosage: UNK
     Route: 048
     Dates: end: 2015
  5. ULORIC [Suspect]
     Active Substance: FEBUXOSTAT
     Indication: BLOOD URIC ACID INCREASED
     Dosage: 80 MG, QD
     Route: 048
     Dates: start: 20151019, end: 2015
  6. ULORIC [Suspect]
     Active Substance: FEBUXOSTAT
     Dosage: 80 MG, QD
     Route: 048
     Dates: start: 2015

REACTIONS (4)
  - Wrong technique in product usage process [Recovered/Resolved]
  - Diarrhoea [Unknown]
  - Gout [Not Recovered/Not Resolved]
  - Vomiting [Unknown]

NARRATIVE: CASE EVENT DATE: 2013
